FAERS Safety Report 20112873 (Version 3)
Quarter: 2021Q4

REPORT INFORMATION
  Report Type: Report from Study
  Country: BR (occurrence: BR)
  Receive Date: 20211125
  Receipt Date: 20211224
  Transmission Date: 20220303
  Serious: Yes (Death, Hospitalization, Other)
  Sender: FDA-Public Use
  Company Number: BR-NOVARTISPH-NVSC2021BR266058

PATIENT
  Sex: Male

DRUGS (2)
  1. TAFINLAR [Suspect]
     Active Substance: DABRAFENIB MESYLATE
     Indication: Malignant melanoma
     Dosage: UNK
     Route: 065
     Dates: start: 20211015
  2. MEKINIST [Suspect]
     Active Substance: TRAMETINIB DIMETHYL SULFOXIDE
     Indication: Malignant melanoma
     Dosage: UNK
     Route: 065
     Dates: start: 20211015

REACTIONS (13)
  - Malignant melanoma [Fatal]
  - Infection [Recovering/Resolving]
  - Diarrhoea [Unknown]
  - Blood pressure decreased [Unknown]
  - Pericardial effusion [Unknown]
  - Arrhythmia [Unknown]
  - Metastases to spine [Unknown]
  - Eschar [Unknown]
  - Inflammation [Unknown]
  - Movement disorder [Unknown]
  - Cerebrovascular accident [Unknown]
  - Vomiting [Unknown]
  - Eating disorder [Unknown]
